FAERS Safety Report 12373887 (Version 1)
Quarter: 2016Q2

REPORT INFORMATION
  Report Type: Other
  Country: US (occurrence: US)
  Receive Date: 20160517
  Receipt Date: 20160517
  Transmission Date: 20160815
  Serious: Yes (Other)
  Sender: FDA-Public Use
  Company Number: US-LUPIN PHARMACEUTICALS INC.-2016-00742

PATIENT
  Age: 34 Year
  Sex: Female

DRUGS (2)
  1. QUETIAPINE. [Suspect]
     Active Substance: QUETIAPINE
     Indication: HEPATO-LENTICULAR DEGENERATION
     Route: 065
  2. ZINC ACETATE [Concomitant]
     Active Substance: ZINC ACETATE
     Indication: BLOOD COPPER INCREASED
     Route: 065

REACTIONS (2)
  - Drug ineffective [Unknown]
  - Akathisia [Unknown]
